FAERS Safety Report 12189843 (Version 1)
Quarter: 2016Q1

REPORT INFORMATION
  Report Type: Spontaneous
  Country: US (occurrence: US)
  Receive Date: 20160318
  Receipt Date: 20160318
  Transmission Date: 20160526
  Serious: No
  Sender: FDA-Public Use
  Company Number: US-ACCORD-037671

PATIENT
  Age: 55 Year
  Sex: Female
  Weight: 47 kg

DRUGS (1)
  1. AMITRIPTYLINE [Suspect]
     Active Substance: AMITRIPTYLINE
     Indication: ABDOMINAL PAIN UPPER
     Dosage: STRENGTH: 10 MG, ONCE DAILY AT BEDTIME (QHS)
     Route: 048

REACTIONS (5)
  - Dysphagia [Recovering/Resolving]
  - Off label use [Unknown]
  - Product taste abnormal [Not Recovered/Not Resolved]
  - Oropharyngeal pain [Not Recovered/Not Resolved]
  - Pyrexia [Recovered/Resolved]

NARRATIVE: CASE EVENT DATE: 20160129
